FAERS Safety Report 5887647-0 (Version None)
Quarter: 2008Q3

REPORT INFORMATION
  Report Type: 
  Country: None (occurrence: None)
  Receive Date: 20080916
  Receipt Date: 20080910
  Transmission Date: 20090109
  Serious: Yes (Hospitalization, Disabling)
  Sender: FDA-Public Use
  Company Number: LTI2008A00260

PATIENT
  Age: 76 Year
  Sex: Female

DRUGS (6)
  1. LANSOPRAZOLE [Suspect]
     Dosage: ORAL
     Route: 048
     Dates: start: 20080201
  2. RENITEC (ENALAPRIL) (TABLETS) [Suspect]
     Dosage: (20 MG) ORAL
     Route: 048
     Dates: start: 20080201
  3. LERCAN (LERCANIDIPINE HYDROCHLORIDE) (TABLETS) [Suspect]
     Indication: HYPERTENSION
     Dosage: (20 MG) ORAL
     Route: 048
     Dates: start: 20080201
  4. PAROXETINE HCL [Suspect]
     Indication: DEPRESSION
     Dosage: ORAL
     Route: 048
  5. NOCTRAN (NOCTRAN 10) [Suspect]
     Indication: INSOMNIA
     Dosage: ORAL
     Route: 048
     Dates: start: 20080201, end: 20080101
  6. CERCYTE (PIPOBROMAN) [Suspect]
     Indication: POLYCYTHAEMIA VERA
     Dosage: 2 DOSAGE FORMS PER WEEK ORAL
     Route: 048

REACTIONS (1)
  - AMYOTROPHIC LATERAL SCLEROSIS [None]
